FAERS Safety Report 10798530 (Version 1)
Quarter: 2015Q1

REPORT INFORMATION
  Report Type: Spontaneous
  Country: US (occurrence: US)
  Receive Date: 20150216
  Receipt Date: 20150216
  Transmission Date: 20150721
  Serious: No
  Sender: FDA-Public Use
  Company Number: US-ASTRAZENECA-2014SE14738

PATIENT
  Age: 48 Year
  Sex: Female
  Weight: 52.2 kg

DRUGS (3)
  1. AMBIEN [Concomitant]
     Active Substance: ZOLPIDEM TARTRATE
     Indication: SLEEP DISORDER
  2. CLONAZAPAM [Concomitant]
     Indication: HEART RATE DECREASED
  3. METOPROLOL SUCCINATE. [Suspect]
     Active Substance: METOPROLOL SUCCINATE
     Indication: HEART RATE
     Route: 048
     Dates: start: 20131230, end: 201401

REACTIONS (10)
  - Tremor [Recovering/Resolving]
  - Off label use [Unknown]
  - Hypoaesthesia [Recovered/Resolved]
  - Fatigue [Not Recovered/Not Resolved]
  - Intentional product misuse [Unknown]
  - Disturbance in attention [Unknown]
  - Adverse event [Not Recovered/Not Resolved]
  - Weight decreased [Unknown]
  - Depression [Not Recovered/Not Resolved]
  - Product use issue [Unknown]

NARRATIVE: CASE EVENT DATE: 201401
